FAERS Safety Report 6642041-X (Version None)
Quarter: 2010Q1

REPORT INFORMATION
  Report Type: 
  Country: None (occurrence: None)
  Receive Date: 20100319
  Receipt Date: 20100310
  Transmission Date: 20100710
  Serious: Yes (Other)
  Sender: FDA-Public Use
  Company Number: US-NOVOPROD-305518

PATIENT
  Sex: Male

DRUGS (1)
  1. NOVOSEVEN [Suspect]
     Indication: HAEMORRHAGE
     Dosage: UNK, MULTIPLE INFUSIONS
     Route: 042

REACTIONS (3)
  - BLOOD FIBRINOGEN INCREASED [None]
  - POST PROCEDURAL SEPSIS [None]
  - THROMBOSIS [None]
